FAERS Safety Report 6590246-9 (Version None)
Quarter: 2010Q1

REPORT INFORMATION
  Report Type: 
  Country: None (occurrence: None)
  Receive Date: 20100219
  Receipt Date: 20100208
  Transmission Date: 20100710
  Serious: Yes (Hospitalization)
  Sender: FDA-Public Use
  Company Number: PHEH2010US02204

PATIENT
  Sex: Female

DRUGS (16)
  1. RECLAST [Suspect]
     Indication: OSTEOPOROSIS
     Dosage: 5 MG, ONCE/SINGLE
     Dates: start: 20091221, end: 20091221
  2. NORCO [Concomitant]
     Dosage: 10/325 MG, EVERY 4 FOURS
     Route: 048
     Dates: end: 20100205
  3. DITROPAN XL [Concomitant]
     Dosage: 1 TABLET, DAILY
     Dates: end: 20100205
  4. CYMBALTA [Concomitant]
     Dosage: 60 MG, QD
     Route: 048
  5. LEVOTHYROXINE SODIUM [Concomitant]
     Dosage: 0.5 MG, QD
     Route: 048
  6. TRIAMTERENE AND HYDROCHLOROTHIAZIDE [Concomitant]
     Dosage: 25 MG/50 MG, DAILY
     Route: 048
  7. FLUTICASONE PROPIONATE [Concomitant]
     Dosage: 50 UG, BID
     Route: 045
  8. SLOW-FE                                 /UNK/ [Concomitant]
     Dosage: 1-2 TABLETS, DAILY
  9. POTASSIUM CHLORIDE [Concomitant]
     Dosage: 1-2 TABLETS OF 10 MBQ, BID
  10. PREMARIN [Concomitant]
     Dosage: 1.25 MG, QD
     Route: 048
  11. XANAX [Concomitant]
     Dosage: 0.25 MG, BID
     Route: 048
  12. CRESTOR [Concomitant]
     Dosage: 20 MG, QD
     Route: 048
  13. BONIVA [Concomitant]
     Dosage: 10 MG, QMO
     Route: 048
  14. ATENOLOL [Concomitant]
     Dosage: 25 MG, BID
     Route: 048
  15. PERCOCET [Concomitant]
     Dosage: 10/325MG, 1/2 TABET DAILY
     Route: 048
  16. ELAVIL [Concomitant]
     Dosage: 1-2 TABLETS, QHS
     Route: 048

REACTIONS (5)
  - BLOOD PRESSURE INCREASED [None]
  - CONFUSIONAL STATE [None]
  - CONVULSION [None]
  - MENTAL STATUS CHANGES [None]
  - RENAL FAILURE [None]
